FAERS Safety Report 11092852 (Version 2)
Quarter: 2015Q2

REPORT INFORMATION
  Report Type: Spontaneous
  Country: US (occurrence: US)
  Receive Date: 20150506
  Receipt Date: 20150513
  Transmission Date: 20150821
  Serious: No
  Sender: FDA-Public Use
  Company Number: US-BAYER-2015-190604

PATIENT
  Sex: Female

DRUGS (1)
  1. MIRENA [Suspect]
     Active Substance: LEVONORGESTREL
     Dosage: DAILY DOSE 20 ?G/D
     Route: 015
     Dates: start: 2015

REACTIONS (5)
  - Dyspnoea [None]
  - Asthenia [None]
  - Gait disturbance [None]
  - Vaginal discharge [None]
  - Dizziness [None]

NARRATIVE: CASE EVENT DATE: 2015
